FAERS Safety Report 9255742 (Version 8)
Quarter: 2013Q4

REPORT INFORMATION
  Report Type: Report from Study
  Country: JP (occurrence: JP)
  Receive Date: 20130425
  Receipt Date: 20131025
  Transmission Date: 20140711
  Serious: Yes (Hospitalization)
  Sender: FDA-Public Use
  Company Number: JP-UCBSA-083438

PATIENT
  Age: 39 Year
  Sex: Male
  Weight: 84.5 kg

DRUGS (9)
  1. CERTOLIZUMAB PEGOL [Suspect]
     Indication: RHEUMATOID ARTHRITIS
     Route: 058
     Dates: start: 20091110
  2. CERTOLIZUMAB PEGOL [Suspect]
     Indication: RHEUMATOID ARTHRITIS
     Route: 058
     Dates: start: 20101210, end: 20130328
  3. PREDNISOLONE [Concomitant]
     Route: 048
  4. DICLOFENAC SODIUM [Concomitant]
     Route: 048
  5. LANSOPRAZOLE [Concomitant]
     Route: 048
  6. SALAZOSULFAPYRIDINE [Concomitant]
     Route: 048
     Dates: start: 20110716
  7. HYDROCORTISONE BUTYRATE [Concomitant]
     Route: 061
     Dates: start: 20130201
  8. FLUOCINONIDE [Concomitant]
     Route: 062
     Dates: start: 20130201
  9. NITROGLYCERIN [Concomitant]
     Route: 048
     Dates: start: 201303, end: 201303

REACTIONS (1)
  - Multiple sclerosis [Recovering/Resolving]
